FAERS Safety Report 6158760-8 (Version None)
Quarter: 2009Q2

REPORT INFORMATION
  Report Type: 
  Country: None (occurrence: None)
  Receive Date: 20090417
  Receipt Date: 20090407
  Transmission Date: 20091009
  Serious: Yes (Hospitalization)
  Sender: FDA-Public Use
  Company Number: B0568900A

PATIENT
  Age: 67 Year
  Sex: Female

DRUGS (7)
  1. REQUIP [Suspect]
     Indication: PARKINSON'S DISEASE
     Dosage: 3MG THREE TIMES PER DAY
     Route: 065
     Dates: end: 20090214
  2. MODOPAR [Suspect]
     Indication: PARKINSON'S DISEASE
     Route: 048
     Dates: end: 20090219
  3. IMOVANE [Suspect]
     Indication: DRUG USE FOR UNKNOWN INDICATION
     Route: 065
     Dates: end: 20090210
  4. ACTONEL [Concomitant]
     Route: 065
  5. IDEOS [Concomitant]
     Route: 065
  6. TROSPIUM CHLORIDE [Concomitant]
     Route: 065
  7. ATHYMIL [Concomitant]
     Route: 065

REACTIONS (14)
  - ALTERED STATE OF CONSCIOUSNESS [None]
  - ATRIOVENTRICULAR BLOCK [None]
  - ATRIOVENTRICULAR BLOCK COMPLETE [None]
  - CONFUSIONAL STATE [None]
  - CONVULSION [None]
  - CYTOLYTIC HEPATITIS [None]
  - DYSKINESIA [None]
  - DYSTONIA [None]
  - FATIGUE [None]
  - HEPATIC ISCHAEMIA [None]
  - HEPATITIS FULMINANT [None]
  - HEPATOCELLULAR INJURY [None]
  - MYOCLONUS [None]
  - OXYGEN SATURATION DECREASED [None]
